FAERS Safety Report 15676425 (Version 4)
Quarter: 2019Q1

REPORT INFORMATION
  Report Type: Report from Study
  Country: CA (occurrence: CA)
  Receive Date: 20181130
  Receipt Date: 20190103
  Transmission Date: 20190417
  Serious: Yes (Other)
  Sender: FDA-Public Use
  Company Number: CA-JNJFOC-20181112064

PATIENT
  Age: 23 Year
  Sex: Male
  Weight: 95 kg

DRUGS (2)
  1. STELARA [Suspect]
     Active Substance: USTEKINUMAB
     Indication: CROHN^S DISEASE
     Route: 058
     Dates: start: 20181128
  2. STELARA [Suspect]
     Active Substance: USTEKINUMAB
     Indication: CROHN^S DISEASE
     Dosage: STRENGTH = 90 MG
     Route: 058
     Dates: start: 20180424

REACTIONS (8)
  - General physical health deterioration [Not Recovered/Not Resolved]
  - Fistula inflammation [Recovering/Resolving]
  - Crohn^s disease [Recovering/Resolving]
  - Off label use [Unknown]
  - Product use issue [Unknown]
  - Anal abscess [Unknown]
  - Drug ineffective [Unknown]
  - Influenza [Recovering/Resolving]

NARRATIVE: CASE EVENT DATE: 2018
